FAERS Safety Report 6553036-9 (Version None)
Quarter: 2010Q1

REPORT INFORMATION
  Report Type: 
  Country: None (occurrence: None)
  Receive Date: 20100122
  Receipt Date: 20100107
  Transmission Date: 20100710
  Serious: Yes (Hospitalization)
  Sender: FDA-Public Use
  Company Number: DSA_42337_2010

PATIENT
  Age: 64 Year
  Sex: Male

DRUGS (39)
  1. ATIVAN [Suspect]
     Indication: ANXIETY
     Dosage: (0.5 MG 1X ORAL)
     Route: 048
     Dates: start: 20091123, end: 20091123
  2. BLINDED (S-P) [Suspect]
     Indication: MYOCARDIAL REPERFUSION INJURY
     Dosage: (541 ML; FREQUENCY UNKNOWN INTRAVENOUS DRIP)
     Route: 041
     Dates: start: 20091110, end: 20091110
  3. MORPHINE SULFATE [Concomitant]
  4. NITROGLYCERIN [Concomitant]
  5. CLOPIDOGREL [Concomitant]
  6. AMIODARONE HCL [Concomitant]
  7. CEFUROXIME [Concomitant]
  8. BLOOD COAGULATION FACTORS [Concomitant]
  9. CRYSTALLOID CARDIOPLEGIA COMMERCIAL BRAND [Concomitant]
  10. DEXMEDETOMIDINE HYDROCHLORIDE [Concomitant]
  11. DOPAMINE HCL [Concomitant]
  12. HEPARIN [Concomitant]
  13. HYDRALAZINE [Concomitant]
  14. REGULAR INSULIN [Concomitant]
  15. MIDAZOLAM HCL [Concomitant]
  16. ROCURONIUM [Concomitant]
  17. SUFENTANYL [Concomitant]
  18. AMLODIPINE [Concomitant]
  19. ATORVASTATIN [Concomitant]
  20. ISOSORBIDE MONONITRATE [Concomitant]
  21. PRILOSEC [Concomitant]
  22. VANTIN [Concomitant]
  23. IMDUR [Concomitant]
  24. METOPROLOL TARTRATE [Concomitant]
  25. PHYTONADIONE [Concomitant]
  26. AZITHROMYCIN [Concomitant]
  27. CEFTRIAXONE [Concomitant]
  28. ESOMEPRAZOLE [Concomitant]
  29. LANTUS [Concomitant]
  30. METOPROLOL TARTRATE [Concomitant]
  31. SOLU-MEDROL [Concomitant]
  32. ACETAMINOPHEN [Concomitant]
  33. ASPIRIN [Concomitant]
  34. FENTANYL-100 [Concomitant]
  35. GABAPENTIN [Concomitant]
  36. GLIPIZIDE [Concomitant]
  37. PROZAC [Concomitant]
  38. SIMVASTATIN [Concomitant]
  39. TRICOR [Concomitant]

REACTIONS (6)
  - CONFUSIONAL STATE [None]
  - GASTROENTERITIS [None]
  - MENTAL STATUS CHANGES [None]
  - SLEEP APNOEA SYNDROME [None]
  - SOMNOLENCE [None]
  - URINARY TRACT INFECTION [None]
